FAERS Safety Report 4395610-4 (Version None)
Quarter: 2004Q3

REPORT INFORMATION
  Report Type: 
  Country: None (occurrence: None)
  Receive Date: 20040712
  Receipt Date: 20040712
  Transmission Date: 20050211
  Serious: Yes (Other)
  Sender: FDA-Public Use
  Company Number: None

PATIENT
  Age: 57 Year
  Sex: Male
  Weight: 52.6 kg

DRUGS (11)
  1. ZOCOR [Suspect]
  2. MEPERIDINE HCL [Concomitant]
  3. SIMVASTATIN [Concomitant]
  4. INSULIN REG HUMAN 100 U/ML NOVOLIN R [Concomitant]
  5. RABEPRAZOLE SODIUM [Concomitant]
  6. METOPROLOL [Concomitant]
  7. FOSINOPRIL SODIUM [Concomitant]
  8. AMYLASE/LIPASE/PROTEASE [Concomitant]
  9. CYCLOBENZAPRINE HCL [Concomitant]
  10. ALBUTEROL [Concomitant]
  11. HYDROXYZINE [Concomitant]

REACTIONS (1)
  - LIVER FUNCTION TEST ABNORMAL [None]
